FAERS Safety Report 7374223-6 (Version None)
Quarter: 2011Q1

REPORT INFORMATION
  Report Type: 
  Country: None (occurrence: None)
  Receive Date: 20110325
  Receipt Date: 20110311
  Transmission Date: 20110831
  Serious: Yes (Hospitalization)
  Sender: FDA-Public Use
  Company Number: ES-TYCO HEALTHCARE/MALLINCKRODT-T201100639

PATIENT
  Age: 75 Year
  Sex: Female

DRUGS (5)
  1. PAROXETINE HCL [Concomitant]
     Indication: SPONDYLOLISTHESIS
     Dosage: 10 MG, QD
  2. PREGABALIN [Concomitant]
     Indication: SPONDYLOLISTHESIS
     Dosage: 100 MG, BID
     Route: 048
  3. LORAZEPAM [Concomitant]
     Indication: ANXIETY
     Dosage: 0.5 MG, QD
     Route: 048
  4. EXALGO [Suspect]
     Indication: SPONDYLOLISTHESIS
     Dosage: 16 MG, QD
     Route: 048
     Dates: start: 20050101, end: 20110201
  5. IBUPROFEN [Suspect]
     Indication: PAIN
     Dosage: 1.8 G, TID
     Route: 048
     Dates: start: 20110214, end: 20110218

REACTIONS (2)
  - RESPIRATORY FAILURE [None]
  - RENAL FAILURE [None]
